FAERS Safety Report 20726347 (Version 5)
Quarter: 2023Q1

REPORT INFORMATION
  Report Type: Spontaneous
  Country: US (occurrence: US)
  Receive Date: 20220419
  Receipt Date: 20230111
  Transmission Date: 20230417
  Serious: No
  Sender: FDA-Public Use
  Company Number: US-PFIZER INC-202101352610

PATIENT
  Age: 84 Year
  Sex: Female

DRUGS (2)
  1. IBRANCE [Suspect]
     Active Substance: PALBOCICLIB
     Dosage: 100 MG, CYCLIC (21 DAY ON 7 DAY OFF)
  2. IBRANCE [Suspect]
     Active Substance: PALBOCICLIB
     Dosage: 75 MG, CYCLIC (14 DAY ON 14 DAY OFF)

REACTIONS (10)
  - Product dose omission issue [Unknown]
  - Off label use [Unknown]
  - Alopecia [Unknown]
  - Blood test abnormal [Unknown]
  - Musculoskeletal discomfort [Unknown]
  - Stress [Unknown]
  - Hair texture abnormal [Unknown]
  - Sleep disorder [Unknown]
  - Fatigue [Unknown]
  - Haemoglobin decreased [Unknown]
